FAERS Safety Report 8867582 (Version 1)
Quarter: 2012Q4

REPORT INFORMATION
  Report Type: 
  Country: US (occurrence: US)
  Receive Date: 20121025
  Receipt Date: 20121025
  Transmission Date: 20130627
  Serious: No
  Sender: FDA-Public Use
  Company Number: US-AMGEN-USASP2012017529

PATIENT
  Age: 64 Year
  Sex: Female

DRUGS (7)
  1. ENBREL [Suspect]
     Indication: PRODUCT USED FOR UNKNOWN INDICATION
     Dosage: 50 mg, qwk
  2. METHOTREXATE [Concomitant]
     Dosage: 250 mg, UNK
  3. PREDNISOLONE [Concomitant]
     Dosage: 5 mg, UNK
  4. CALCIUM [Concomitant]
  5. VITAMIN D /00107901/ [Concomitant]
  6. FOLIC ACID [Concomitant]
  7. ALENDRONATE [Concomitant]
     Dosage: 5 mg, UNK

REACTIONS (4)
  - Injection site reaction [Unknown]
  - Injection site erythema [Unknown]
  - Injection site pruritus [Unknown]
  - Injection site swelling [Unknown]
